FAERS Safety Report 9815722 (Version 1)
Quarter: 2014Q1

REPORT INFORMATION
  Report Type: Spontaneous
  Country: GB (occurrence: None)
  Receive Date: 20140110
  Receipt Date: 20140110
  Transmission Date: 20141002
  Serious: Yes (Hospitalization, Other)
  Sender: FDA-Public Use
  Company Number: CL-514-2014

PATIENT
  Age: 77 Year
  Sex: Female
  Weight: 84 kg

DRUGS (8)
  1. LEVOFLOXACIN [Suspect]
     Indication: EVIDENCE BASED TREATMENT
     Dosage: 500MG OD IV, (5 DAYS)
     Route: 042
  2. METRONIDAZOLE [Suspect]
     Indication: EVIDENCE BASED TREATMENT
     Dosage: 500MG 8/H IV (5 DAYS)
     Route: 042
  3. ALLOPURINOL 300MG [Concomitant]
  4. DILTIAZEM [Concomitant]
  5. FAMOTIDINE [Concomitant]
  6. FUROSEMIDE [Concomitant]
  7. LEVOTHYROXINE [Concomitant]
  8. PAXOXETINE [Concomitant]

REACTIONS (10)
  - Confusional state [None]
  - Disorientation [None]
  - Dysarthria [None]
  - Dyskinesia [None]
  - Drug interaction [None]
  - Renal failure [None]
  - Muscle twitching [None]
  - Muscle spasms [None]
  - Grimacing [None]
  - Muscle contracture [None]
